FAERS Safety Report 26162993 (Version 1)
Quarter: 2025Q4

REPORT INFORMATION
  Report Type: Spontaneous
  Country: US (occurrence: None)
  Receive Date: 20251215
  Receipt Date: 20251215
  Transmission Date: 20260118
  Serious: No
  Sender: FDA-CTU
  Company Number: None

PATIENT
  Age: 73 Year
  Sex: Female
  Weight: 153 kg

DRUGS (1)
  1. TETRABENAZINE [Suspect]
     Active Substance: TETRABENAZINE
     Indication: Tardive dyskinesia
     Dosage: FREQUENCY : DAILY;
     Route: 048
     Dates: start: 20251205, end: 20251215

REACTIONS (3)
  - Dizziness [None]
  - Somnolence [None]
  - Abdominal pain upper [None]

NARRATIVE: CASE EVENT DATE: 20251205
